FAERS Safety Report 14907272 (Version 1)
Quarter: 2018Q2

REPORT INFORMATION
  Report Type: Spontaneous
  Country: DE (occurrence: DE)
  Receive Date: 20180517
  Receipt Date: 20180517
  Transmission Date: 20180711
  Serious: Yes (Other)
  Sender: FDA-Public Use
  Company Number: DE-DRREDDYS-GER/GER/18/0098887

PATIENT
  Age: 1 Day
  Sex: Female
  Weight: 2.55 kg

DRUGS (2)
  1. FOLIO FORTE PLUS D3 [Concomitant]
     Indication: PROPHYLAXIS OF NEURAL TUBE DEFECT
     Dosage: 0.8 [MG/D ]
     Route: 064
     Dates: start: 20161212, end: 20170802
  2. LEVETIRACETAM. [Suspect]
     Active Substance: LEVETIRACETAM
     Indication: EPILEPSY
     Dosage: 1000 (MG/D), (0 TO 40.1GESTATIONAL WEEK)
     Route: 064
     Dates: start: 20161025, end: 20170802

REACTIONS (2)
  - Small for dates baby [Recovering/Resolving]
  - Foetal exposure during pregnancy [None]

NARRATIVE: CASE EVENT DATE: 20170802
